FAERS Safety Report 7141808-1 (Version None)
Quarter: 2010Q4

REPORT INFORMATION
  Report Type: 
  Country: None (occurrence: None)
  Receive Date: 20101207
  Receipt Date: 20101130
  Transmission Date: 20110411
  Serious: Yes (Other)
  Sender: FDA-Public Use
  Company Number: US-ROCHE-739807

PATIENT
  Sex: Male
  Weight: 86.2 kg

DRUGS (2)
  1. CLONAZEPAM [Suspect]
     Indication: ANXIETY
     Dosage: OTHER INDICATION: SLEEP PROBLEM
     Route: 065
     Dates: start: 20091215
  2. PROZAC [Concomitant]
     Dates: start: 20091208

REACTIONS (1)
  - WEIGHT DECREASED [None]
